FAERS Safety Report 6124641-9 (Version None)
Quarter: 2009Q1

REPORT INFORMATION
  Report Type: 
  Country: None (occurrence: None)
  Receive Date: 20090319
  Receipt Date: 20090312
  Transmission Date: 20090719
  Serious: Yes (Hospitalization)
  Sender: FDA-Public Use
  Company Number: B0564688A

PATIENT
  Age: 86 Year
  Sex: Female

DRUGS (6)
  1. DEROXAT [Suspect]
     Indication: DRUG USE FOR UNKNOWN INDICATION
     Dosage: 20MG PER DAY
     Route: 048
     Dates: start: 20080101, end: 20081222
  2. LASILIX FAIBLE [Suspect]
     Indication: DRUG USE FOR UNKNOWN INDICATION
     Dosage: 10MG PER DAY
     Route: 048
     Dates: start: 20080101, end: 20081222
  3. CORTANCYL [Concomitant]
     Dosage: 3MG PER DAY
     Route: 065
  4. PROTELOS [Concomitant]
     Dosage: 2G PER DAY
     Route: 065
  5. STILNOX [Concomitant]
     Dosage: 10MG PER DAY
     Route: 065
  6. ZAMUDOL [Concomitant]
     Dosage: 2TAB PER DAY
     Route: 065

REACTIONS (7)
  - ABDOMINAL PAIN [None]
  - BACK PAIN [None]
  - DYSSTASIA [None]
  - FALL [None]
  - HYPONATRAEMIA [None]
  - INTERVERTEBRAL DISC COMPRESSION [None]
  - MALAISE [None]
